FAERS Safety Report 8784465 (Version 1)
Quarter: 2012Q4

REPORT INFORMATION
  Report Type: 
  Country: US (occurrence: US)
  Receive Date: 20120913
  Receipt Date: 20120913
  Transmission Date: 20130627
  Serious: Yes (Other)
  Sender: FDA-Public Use
  Company Number: US-PFIZER INC-2012220428

PATIENT
  Sex: Male

DRUGS (1)
  1. LEVOXYL [Suspect]
     Dosage: UNK
     Route: 048

REACTIONS (3)
  - Product shape issue [Unknown]
  - Choking [Unknown]
  - Dyspnoea [Unknown]
